FAERS Safety Report 5498047-X (Version None)
Quarter: 2007Q4

REPORT INFORMATION
  Report Type: 
  Country: None (occurrence: None)
  Receive Date: 20071025
  Receipt Date: 20071013
  Transmission Date: 20080405
  Serious: Yes (Other)
  Sender: FDA-Public Use
  Company Number: US-PFIZER INC-2007085816

PATIENT
  Sex: Female
  Weight: 49.9 kg

DRUGS (1)
  1. CHANTIX [Suspect]
     Indication: SMOKING CESSATION THERAPY
     Route: 048
     Dates: start: 20070901, end: 20071011

REACTIONS (8)
  - ABNORMAL BEHAVIOUR [None]
  - BLOOD CHOLESTEROL INCREASED [None]
  - DECREASED APPETITE [None]
  - DEPRESSION [None]
  - INTENTIONAL DRUG MISUSE [None]
  - PERSONALITY CHANGE [None]
  - STRESS [None]
  - SUICIDAL IDEATION [None]
